FAERS Safety Report 15390249 (Version 1)
Quarter: 2018Q3

REPORT INFORMATION
  Report Type: Spontaneous
  Country: IT (occurrence: IT)
  Receive Date: 20180917
  Receipt Date: 20180917
  Transmission Date: 20181010
  Serious: Yes (Death, Other)
  Sender: FDA-Public Use
  Company Number: IT-009507513-1809ITA005771

PATIENT
  Age: 84 Year
  Sex: Female

DRUGS (1)
  1. KEYTRUDA [Suspect]
     Active Substance: PEMBROLIZUMAB
     Indication: NON-SMALL CELL LUNG CANCER METASTATIC
     Dosage: UNK
     Dates: start: 2018, end: 201808

REACTIONS (4)
  - Oedema peripheral [Fatal]
  - Dyspnoea [Fatal]
  - Cardiac failure [Fatal]
  - Abdominal distension [Fatal]

NARRATIVE: CASE EVENT DATE: 2018
